FAERS Safety Report 8819375 (Version 1)
Quarter: 2012Q4

REPORT INFORMATION
  Report Type: Spontaneous
  Country: US (occurrence: None)
  Receive Date: 20121003
  Receipt Date: 20121003
  Transmission Date: 20130627
  Serious: Yes (Life-Threatening)
  Sender: FDA-Public Use
  Company Number: FK201202861

PATIENT
  Age: 45 Year
  Sex: Male

DRUGS (2)
  1. FLUOROURACIL [Suspect]
     Indication: METASTATIC GASTRIC CANCER
     Route: 042
     Dates: start: 20120820, end: 20120823
  2. CISPLATIN [Suspect]
     Indication: METASTATIC GASTRIC CANCER
     Dates: start: 20120820, end: 20120820

REACTIONS (1)
  - Acute coronary syndrome [None]
